FAERS Safety Report 5996379-X (Version None)
Quarter: 2008Q4

REPORT INFORMATION
  Report Type: 
  Country: None (occurrence: None)
  Receive Date: 20081212
  Receipt Date: 20081015
  Transmission Date: 20090506
  Serious: No
  Sender: FDA-Public Use
  Company Number: US-ABBOTT-08P-163-0482084-00

PATIENT
  Sex: Female
  Weight: 66.284 kg

DRUGS (1)
  1. HUMIRA [Suspect]
     Indication: RHEUMATOID ARTHRITIS
     Dates: start: 20080601

REACTIONS (9)
  - ASTHENIA [None]
  - BLOOD PRESSURE INCREASED [None]
  - COUGH [None]
  - DERMATITIS [None]
  - LOSS OF CONSCIOUSNESS [None]
  - OROPHARYNGEAL PAIN [None]
  - PAIN [None]
  - TENDERNESS [None]
  - VIRAL INFECTION [None]
